FAERS Safety Report 8586230-6 (Version None)
Quarter: 2012Q3

REPORT INFORMATION
  Report Type: 
  Country: None (occurrence: None)
  Receive Date: 20120810
  Receipt Date: 20120731
  Transmission Date: 20120928
  Serious: No
  Sender: FDA-Public Use
  Company Number: US-ASTRAZENECA-2012SE54412

PATIENT
  Age: 663 Month
  Sex: Male
  Weight: 115.7 kg

DRUGS (7)
  1. NAVANE [Concomitant]
  2. KLONOPIN [Concomitant]
  3. LITHIUM CARBONATE [Concomitant]
  4. SEROQUEL [Suspect]
     Indication: MANIA
     Dosage: 12.5 MG ONCE A DAY
     Route: 048
     Dates: start: 20120601, end: 20120701
  5. ASPIRIN [Concomitant]
  6. SYNTHROID [Concomitant]
  7. SEROQUEL [Suspect]
     Indication: BIPOLAR DISORDER
     Dosage: 12.5 MG ONCE A DAY
     Route: 048
     Dates: start: 20120601, end: 20120701

REACTIONS (2)
  - OFF LABEL USE [None]
  - FATIGUE [None]
